FAERS Safety Report 18040739 (Version 3)
Quarter: 2020Q3

REPORT INFORMATION
  Report Type: Spontaneous
  Country: FR (occurrence: FR)
  Receive Date: 20200717
  Receipt Date: 20200829
  Transmission Date: 20201103
  Serious: Yes (Death)
  Sender: FDA-Public Use
  Company Number: NVSC2020FR200902

PATIENT
  Age: 73 Year
  Sex: Male
  Weight: 98 kg

DRUGS (6)
  1. VANCOMYCIN [Suspect]
     Active Substance: VANCOMYCIN
     Indication: SEPSIS
     Dosage: UNK (LAST DOSE OD ADMINISTRATION WAS ON 25 JUN 2020)
     Route: 041
     Dates: start: 20200622, end: 20200625
  2. GENTAMICINE [Suspect]
     Active Substance: GENTAMICIN
     Indication: SEPSIS
     Dosage: UNK
     Route: 041
     Dates: start: 20200623
  3. OCTAGAM IMMUNE GLOBULIN (HUMAN) [Suspect]
     Active Substance: HUMAN IMMUNOGLOBULIN G
     Indication: GUILLAIN-BARRE SYNDROME
     Dosage: UNK
     Route: 041
     Dates: start: 20200619, end: 20200623
  4. TIENAM [Suspect]
     Active Substance: CILASTATIN SODIUM\IMIPENEM
     Indication: SEPSIS
     Dosage: UNK
     Route: 041
     Dates: start: 20200622, end: 20200624
  5. VIALEBEX [Suspect]
     Active Substance: ALBUMIN HUMAN
     Indication: GUILLAIN-BARRE SYNDROME
     Dosage: UNK (SOLUTION POUR PERFUSION)
     Route: 041
     Dates: start: 20200619, end: 20200623
  6. AMIKACINE [Suspect]
     Active Substance: AMIKACIN
     Indication: SEPSIS
     Dosage: UNK
     Route: 041
     Dates: start: 20200622, end: 20200622

REACTIONS (3)
  - Sepsis [Fatal]
  - Acute kidney injury [Fatal]
  - Product use in unapproved indication [Fatal]

NARRATIVE: CASE EVENT DATE: 20200622
